FAERS Safety Report 5514076-1 (Version None)
Quarter: 2007Q4

REPORT INFORMATION
  Report Type: 
  Country: None (occurrence: None)
  Receive Date: 20071113
  Receipt Date: 20071108
  Transmission Date: 20080405
  Serious: Yes (Death, Other)
  Sender: FDA-Public Use
  Company Number: US-AVENTIS-200717899US

PATIENT
  Age: 79 Year
  Sex: Male

DRUGS (3)
  1. LOVENOX [Suspect]
     Route: 051
  2. PLAVIX [Concomitant]
     Dosage: DOSE: UNK
     Route: 048
  3. ASPIRIN [Concomitant]
     Dosage: DOSE: UNK

REACTIONS (3)
  - ACCIDENTAL OVERDOSE [None]
  - DEATH [None]
  - RETROPERITONEAL HAEMATOMA [None]
